FAERS Safety Report 5775472-0 (Version None)
Quarter: 2008Q2

REPORT INFORMATION
  Report Type: 
  Country: None (occurrence: None)
  Receive Date: 20080612
  Receipt Date: 20080602
  Transmission Date: 20081010
  Serious: Yes (Hospitalization)
  Sender: FDA-Public Use
  Company Number: FR-1166243

PATIENT
  Age: 51 Year
  Sex: Female

DRUGS (1)
  1. MAXITROL [Suspect]

REACTIONS (7)
  - CHILLS [None]
  - CYTOLYTIC HEPATITIS [None]
  - EOSINOPHILIA [None]
  - LUNG DISORDER [None]
  - PAIN [None]
  - PYREXIA [None]
  - RASH [None]
